FAERS Safety Report 4404685-5 (Version None)
Quarter: 2004Q3

REPORT INFORMATION
  Report Type: 
  Country: None (occurrence: None)
  Receive Date: 20040722
  Receipt Date: 20040714
  Transmission Date: 20050211
  Serious: Yes (Hospitalization)
  Sender: FDA-Public Use
  Company Number: US-MERCK-0407USA01242

PATIENT
  Age: 81 Year
  Sex: Female

DRUGS (4)
  1. LOTREL [Concomitant]
     Route: 065
  2. ZOSTRIX [Concomitant]
     Route: 065
  3. VIOXX [Suspect]
     Indication: ARTHRALGIA
     Route: 048
     Dates: start: 20040101
  4. COUMADIN [Concomitant]
     Route: 065

REACTIONS (2)
  - DRUG INEFFECTIVE [None]
  - THROMBOSIS [None]
